FAERS Safety Report 6185985-8 (Version None)
Quarter: 2009Q2

REPORT INFORMATION
  Report Type: 
  Country: None (occurrence: None)
  Receive Date: 20090511
  Receipt Date: 20090428
  Transmission Date: 20091009
  Serious: Yes (Hospitalization)
  Sender: FDA-Public Use
  Company Number: FR-PFIZER INC-2009204283

PATIENT
  Age: 55 Year

DRUGS (13)
  1. LONOTEN [Suspect]
     Dosage: 5 MG, 1X/DAY
     Route: 048
     Dates: start: 20090130, end: 20090303
  2. MICARDIS HCT [Suspect]
     Dosage: 1 DF, 1X/DAY
     Dates: start: 20090130, end: 20090303
  3. MICARDIS [Suspect]
     Dosage: 40 MG, 1X/DAY
     Route: 048
     Dates: start: 20090108, end: 20090303
  4. ISOPTIN [Concomitant]
     Dosage: UNK
  5. MEDIATENSYL [Concomitant]
     Dosage: 60 UNK, 3X/DAY
  6. KARDEGIC [Concomitant]
     Dosage: 75 UNK, UNK
  7. PLAVIX [Concomitant]
     Dosage: UNK
  8. DEDROGYL [Concomitant]
     Dosage: UNK
  9. OROCAL [Concomitant]
     Dosage: UNK
  10. LEDERFOLIN [Concomitant]
     Dosage: 25 UNK, UNK
  11. FERROUS SULFATE TAB [Concomitant]
     Dosage: UNK
  12. ASPEGIC 1000 [Concomitant]
     Dosage: UNK
     Dates: end: 20080101
  13. APROVEL [Concomitant]
     Dosage: UNK
     Dates: end: 20080101

REACTIONS (1)
  - RENAL FAILURE ACUTE [None]
